FAERS Safety Report 10593610 (Version 4)
Quarter: 2015Q2

REPORT INFORMATION
  Report Type: Spontaneous
  Country: US (occurrence: US)
  Receive Date: 20141119
  Receipt Date: 20150611
  Transmission Date: 20150821
  Serious: Yes (Hospitalization, Other)
  Sender: FDA-Public Use
  Company Number: US-BAYER-2014-170342

PATIENT
  Age: 34 Year
  Sex: Female
  Weight: 63 kg

DRUGS (4)
  1. VICODIN [Concomitant]
     Active Substance: ACETAMINOPHEN\HYDROCODONE BITARTRATE
     Indication: PELVIC PAIN
     Dosage: 5-500 EVERT 4 TO 6 HRS AS NEEDED
     Dates: start: 20100401
  2. SYNTHROID [Concomitant]
     Active Substance: LEVOTHYROXINE SODIUM
     Dosage: UNK
     Dates: start: 2005
  3. METHIMAZOLE. [Concomitant]
     Active Substance: METHIMAZOLE
     Dosage: UNK
     Dates: start: 2005
  4. MIRENA [Suspect]
     Active Substance: LEVONORGESTREL
     Indication: CONTRACEPTION
     Dosage: 20 MCG/24HR, CONT
     Route: 015
     Dates: start: 20090708, end: 20100405

REACTIONS (18)
  - Pregnancy with contraceptive device [None]
  - Device difficult to use [None]
  - Uterine contractions abnormal [None]
  - Emotional distress [None]
  - Dyspareunia [None]
  - Papilloedema [None]
  - Suppressed lactation [None]
  - Medical device pain [None]
  - Swelling [None]
  - Psychological trauma [None]
  - Injury [None]
  - Anxiety [None]
  - Headache [None]
  - Nightmare [None]
  - Embedded device [None]
  - High risk pregnancy [None]
  - Stress [None]
  - Device issue [None]

NARRATIVE: CASE EVENT DATE: 200910
